FAERS Safety Report 17411038 (Version 3)
Quarter: 2020Q4

REPORT INFORMATION
  Report Type: Spontaneous
  Country: US (occurrence: US)
  Receive Date: 20200212
  Receipt Date: 20201112
  Transmission Date: 20210113
  Serious: No
  Sender: FDA-Public Use
  Company Number: US-RIGEL PHARMACEUTICALS, INC.-2019FOS000642

PATIENT
  Sex: Male
  Weight: 126.98 kg

DRUGS (4)
  1. CALQUENCE [Concomitant]
     Active Substance: ACALABRUTINIB
     Indication: PRODUCT USED FOR UNKNOWN INDICATION
     Dosage: UNK
  2. TAVALISSE [Suspect]
     Active Substance: FOSTAMATINIB
     Dosage: 150 MG, BID
     Route: 048
     Dates: start: 201909
  3. TAVALISSE [Suspect]
     Active Substance: FOSTAMATINIB
     Dosage: 100 MG, BID
     Route: 048
     Dates: start: 201909
  4. TAVALISSE [Suspect]
     Active Substance: FOSTAMATINIB
     Dosage: 150 MG, BID
     Route: 048
     Dates: start: 201909

REACTIONS (7)
  - Dry mouth [Unknown]
  - Dry skin [Unknown]
  - Nocturia [Unknown]
  - Diarrhoea [Not Recovered/Not Resolved]
  - Ingrowing nail [Recovered/Resolved]
  - Product dose omission issue [Unknown]
  - Tooth abscess [Recovered/Resolved]

NARRATIVE: CASE EVENT DATE: 2019
